APPROVED DRUG PRODUCT: TRI-LEGEST 21
Active Ingredient: ETHINYL ESTRADIOL; NORETHINDRONE ACETATE
Strength: 0.02MG,0.03MG,0.035MG;1MG,1MG,1MG
Dosage Form/Route: TABLET;ORAL-21
Application: A076405 | Product #001
Applicant: BARR LABORATORIES INC
Approved: Oct 26, 2007 | RLD: No | RS: No | Type: DISCN